FAERS Safety Report 25590916 (Version 1)
Quarter: 2025Q3

REPORT INFORMATION
  Report Type: Spontaneous
  Country: US (occurrence: None)
  Receive Date: 20250721
  Receipt Date: 20250721
  Transmission Date: 20251021
  Serious: Yes (Death)
  Sender: FDA-CTU
  Company Number: None

PATIENT
  Sex: Male

DRUGS (11)
  1. TEZSPIRE [Suspect]
     Active Substance: TEZEPELUMAB-EKKO
     Indication: Asthma
     Dosage: FREQUENCY : MONTHLY;?
     Dates: start: 20240210
  2. AZITHROMYCIN [Concomitant]
     Active Substance: AZITHROMYCIN
  3. CHLORTHALID TAB 25MG [Concomitant]
  4. FAMOTIDINE TAB 40MG [Concomitant]
  5. FLUTIC/SALME AER 500/50 [Concomitant]
  6. FUROSEMIDE [Concomitant]
     Active Substance: FUROSEMIDE
  7. MOUNJARO INJ 7.5/0.5 [Concomitant]
  8. MULTIVITAMIN TAB [Concomitant]
  9. OMEPRAZOLE [Concomitant]
     Active Substance: OMEPRAZOLE
  10. POT CL MICRO TAB 20MEQ ER [Concomitant]
  11. PREDNISONE [Concomitant]
     Active Substance: PREDNISONE

REACTIONS (1)
  - Death [None]
